FAERS Safety Report 14012259 (Version 2)
Quarter: 2017Q4

REPORT INFORMATION
  Report Type: Spontaneous
  Country: US (occurrence: US)
  Receive Date: 20170926
  Receipt Date: 20171201
  Transmission Date: 20180321
  Serious: Yes (Other)
  Sender: FDA-Public Use
  Company Number: US-JNJFOC-20170924517

PATIENT
  Age: 79 Year
  Sex: Female

DRUGS (1)
  1. XARELTO [Suspect]
     Active Substance: RIVAROXABAN
     Indication: PRODUCT USED FOR UNKNOWN INDICATION
     Dosage: STARTED RIVAROXABAN IN OCTOBER OR NOVEMBER OF 2016
     Route: 048
     Dates: start: 2016

REACTIONS (2)
  - Cerebrovascular accident [Unknown]
  - Product lot number issue [Unknown]

NARRATIVE: CASE EVENT DATE: 201708
